FAERS Safety Report 13995522 (Version 3)
Quarter: 2017Q4

REPORT INFORMATION
  Report Type: Spontaneous
  Country: US (occurrence: US)
  Receive Date: 20170921
  Receipt Date: 20171116
  Transmission Date: 20180321
  Serious: No
  Sender: FDA-Public Use
  Company Number: US-ALEXION PHARMACEUTICALS INC.-A201710494

PATIENT
  Sex: Female

DRUGS (1)
  1. STRENSIQ [Suspect]
     Active Substance: ASFOTASE ALFA
     Indication: HYPOPHOSPHATASIA
     Dosage: 2 MG/KG, TIW
     Route: 058
     Dates: start: 20170111

REACTIONS (3)
  - Tooth loss [Not Recovered/Not Resolved]
  - Vitamin B6 decreased [Not Recovered/Not Resolved]
  - Loose tooth [Recovered/Resolved]

NARRATIVE: CASE EVENT DATE: 201708
